FAERS Safety Report 10158251 (Version 2)
Quarter: 2014Q2

REPORT INFORMATION
  Report Type: Spontaneous
  Country: BR (occurrence: BR)
  Receive Date: 20140507
  Receipt Date: 20140507
  Transmission Date: 20141212
  Serious: Yes (Hospitalization, Other)
  Sender: FDA-Public Use
  Company Number: BR-009507513-1303BRA012785

PATIENT
  Age: 34 Year
  Sex: Female
  Weight: 62 kg

DRUGS (2)
  1. IMPLANON [Suspect]
     Indication: CONTRACEPTION
     Dosage: UNK
     Route: 059
     Dates: start: 20121010
  2. QLAIRA [Concomitant]
     Indication: CONTRACEPTION

REACTIONS (5)
  - Caesarean section [Unknown]
  - Unintended pregnancy [Not Recovered/Not Resolved]
  - Anaemia [Unknown]
  - Menstruation irregular [Recovered/Resolved]
  - Medical device complication [Unknown]
